FAERS Safety Report 10271993 (Version 3)
Quarter: 2015Q2

REPORT INFORMATION
  Report Type: Report from Study
  Country: FR (occurrence: FR)
  Receive Date: 20140702
  Receipt Date: 20150605
  Transmission Date: 20150821
  Serious: Yes (Hospitalization)
  Sender: FDA-Public Use
  Company Number: PHHO2008FR01793

PATIENT
  Age: 54 Year
  Sex: Female
  Weight: 77 kg

DRUGS (3)
  1. SOM230 [Suspect]
     Active Substance: PASIREOTIDE
     Indication: ACRAL OVERGROWTH
     Dosage: 900 UG, BID
     Route: 058
     Dates: start: 20080118, end: 20080129
  2. BIPRETERAX [Concomitant]
     Active Substance: INDAPAMIDE\PERINDOPRIL
     Indication: HYPERTENSION
     Dosage: UNK
     Route: 065
  3. OMEPRAZOLE. [Concomitant]
     Active Substance: OMEPRAZOLE
     Indication: HYPERCORTICOIDISM
     Dosage: UNK
     Route: 065

REACTIONS (1)
  - Hyperglycaemia [Recovering/Resolving]

NARRATIVE: CASE EVENT DATE: 20080121
